FAERS Safety Report 10066292 (Version 1)
Quarter: 2014Q2

REPORT INFORMATION
  Report Type: Spontaneous
  Country: AT (occurrence: AT)
  Receive Date: 20140408
  Receipt Date: 20140408
  Transmission Date: 20141212
  Serious: Yes (Other)
  Sender: FDA-Public Use
  Company Number: AT-WATSON-2013-24578

PATIENT
  Age: 44 Year
  Sex: Male
  Weight: 120 kg

DRUGS (4)
  1. LISINOPRIL-HYDROCHLOROTHIAZIDE (UNKNOWN) [Suspect]
     Route: 065
  2. METFORMIN (UNKNOWN) [Suspect]
     Route: 065
  3. LISINOPRIL RATIOPHARM [Suspect]
     Indication: HYPERTENSION
     Route: 065
  4. BEZAFIBRATE [Concomitant]
     Indication: PRODUCT USED FOR UNKNOWN INDICATION

REACTIONS (1)
  - Pancreatitis [Unknown]
